FAERS Safety Report 6805706-2 (Version None)
Quarter: 2010Q2

REPORT INFORMATION
  Report Type: 
  Country: None (occurrence: None)
  Receive Date: 20100628
  Receipt Date: 20080707
  Transmission Date: 20101027
  Serious: Yes (Other)
  Sender: FDA-Public Use
  Company Number: US-PFIZER INC-2008003942

PATIENT
  Sex: Female
  Weight: 51.3 kg

DRUGS (16)
  1. SUTENT [Suspect]
     Indication: RENAL CELL CARCINOMA
     Route: 048
     Dates: start: 20071116
  2. NYSTATIN [Concomitant]
     Route: 048
     Dates: start: 20080104, end: 20080111
  3. ATENOLOL [Concomitant]
     Dosage: ONCE A DAY
     Route: 048
  4. HYDROCHLOROTHIAZIDE [Concomitant]
     Dosage: ONCE A DAY
     Route: 048
  5. LISINOPRIL [Concomitant]
     Route: 048
  6. CLONIDINE [Concomitant]
     Dosage: TWICE A DAY
     Route: 048
  7. FOLGARD [Concomitant]
     Route: 048
     Dates: start: 20080325
  8. ALPHAGAN [Concomitant]
     Route: 047
     Dates: start: 20071116
  9. COLACE [Concomitant]
     Route: 048
     Dates: start: 20071116
  10. FOLINIC ACID [Concomitant]
     Route: 048
     Dates: start: 20071116
  11. DURAGESIC-100 [Concomitant]
     Dates: start: 20071116
  12. LORCET-HD [Concomitant]
     Route: 048
     Dates: start: 20071214
  13. REGLAN [Concomitant]
     Route: 048
     Dates: start: 20071214
  14. ATIVAN [Concomitant]
     Route: 048
     Dates: start: 20071214
  15. LASIX [Concomitant]
     Dosage: QD X 1 MO.
     Route: 048
     Dates: start: 20080111
  16. K-DUR [Concomitant]
     Dosage: QD X 1 MO.
     Route: 048
     Dates: start: 20080111

REACTIONS (8)
  - HAEMATOCRIT DECREASED [None]
  - HAEMOGLOBIN DECREASED [None]
  - HYPERTENSION [None]
  - NEUTROPHIL COUNT DECREASED [None]
  - ORAL PAIN [None]
  - PANCYTOPENIA [None]
  - PLATELET COUNT DECREASED [None]
  - WHITE BLOOD CELL COUNT DECREASED [None]
